FAERS Safety Report 4805657-9 (Version None)
Quarter: 2005Q4

REPORT INFORMATION
  Report Type: 
  Country: None (occurrence: None)
  Receive Date: 20051021
  Receipt Date: 20050329
  Transmission Date: 20060501
  Serious: Yes (Other)
  Sender: FDA-Public Use
  Company Number: US-ROCHE-399967

PATIENT
  Sex: Female
  Weight: 3.9 kg

DRUGS (6)
  1. ACCUTANE [Suspect]
     Dates: start: 20031020
  2. ACCUTANE [Suspect]
     Dosage: PRESCRIBED EVERY OTHER DAY, BUT TAKEN DAILY BECAUSE THE PATIENT WAS IMPATIENT.
     Dates: start: 20040123, end: 20040323
  3. VALIUM [Concomitant]
     Dates: start: 20040314, end: 20040415
  4. KLONOPIN [Concomitant]
     Dates: end: 20040410
  5. GENERIC UNKNOWN [Concomitant]
     Dosage: REPORTED AS: DEXADRINE.  TAKEN UPTO 7 WEEKS GESTATION.
  6. PROVERA [Concomitant]
     Dosage: TAKEN UP TO 5-7 WEEKS GESTATION.

REACTIONS (4)
  - DRUG EXPOSURE DURING PREGNANCY [None]
  - FOETAL HEART RATE DECELERATION [None]
  - FORCEPS DELIVERY [None]
  - UMBILICAL CORD AROUND NECK [None]
